FAERS Safety Report 19894502 (Version 1)
Quarter: 2021Q3

REPORT INFORMATION
  Report Type: Report from Study
  Country: FR (occurrence: FR)
  Receive Date: 20210929
  Receipt Date: 20210929
  Transmission Date: 20211014
  Serious: Yes (Death, Other)
  Sender: FDA-Public Use
  Company Number: FR-TAKEDA-2021TJP096941

PATIENT

DRUGS (1)
  1. PONATINIB [Suspect]
     Active Substance: PONATINIB
     Indication: CHRONIC MYELOID LEUKAEMIA
     Dosage: UNK
     Route: 065

REACTIONS (13)
  - Hypertension [Unknown]
  - Dry skin [Unknown]
  - Aortic valve incompetence [Unknown]
  - Angina pectoris [Unknown]
  - Pericardial effusion [Unknown]
  - Pulmonary embolism [Fatal]
  - Lipase increased [Unknown]
  - Acute coronary syndrome [Unknown]
  - Cerebrovascular accident [Unknown]
  - Therapy non-responder [Unknown]
  - Constipation [Unknown]
  - Atrial fibrillation [Unknown]
  - Ischaemic stroke [Unknown]
